FAERS Safety Report 14719172 (Version 1)
Quarter: 2018Q2

REPORT INFORMATION
  Report Type: Spontaneous
  Country: JP (occurrence: JP)
  Receive Date: 20180405
  Receipt Date: 20180405
  Transmission Date: 20180711
  Serious: Yes (Hospitalization)
  Sender: FDA-Public Use
  Company Number: JP-ROCHE-2100286

PATIENT
  Age: 60 Year
  Sex: Female
  Weight: 46 kg

DRUGS (4)
  1. TAMIFLU [Suspect]
     Active Substance: OSELTAMIVIR PHOSPHATE
     Indication: INFLUENZA
     Dosage: LAST DOSE ON 08/FEB/2018
     Route: 048
     Dates: start: 20180203
  2. CALONAL [Concomitant]
     Active Substance: ACETAMINOPHEN
     Dosage: DOSAGE IS UNCERTAIN.
     Route: 065
     Dates: start: 20180203, end: 20180203
  3. MIYA-BM [Concomitant]
     Active Substance: CLOSTRIDIUM BUTYRICUM SPORES STRAIN M-55
     Dosage: DOSAGE IS UNCERTAIN.
     Route: 065
     Dates: start: 20180204
  4. ZOLPIDEM TARTRATE. [Concomitant]
     Active Substance: ZOLPIDEM TARTRATE
     Dosage: DOSAGE IS UNCERTAIN.
     Route: 048
     Dates: start: 20180206, end: 20180206

REACTIONS (1)
  - Colitis ischaemic [Recovering/Resolving]

NARRATIVE: CASE EVENT DATE: 20180204
